FAERS Safety Report 5595516-9 (Version None)
Quarter: 2008Q1

REPORT INFORMATION
  Report Type: 
  Country: None (occurrence: None)
  Receive Date: 20080118
  Receipt Date: 20080114
  Transmission Date: 20080703
  Serious: Yes (Hospitalization, Other)
  Sender: FDA-Public Use
  Company Number: GB-ALLERGAN-0800560US

PATIENT
  Sex: Male

DRUGS (2)
  1. DYSPORT [Suspect]
     Indication: DRUG USE FOR UNKNOWN INDICATION
     Dosage: 170 IU, SINGLE
     Route: 030
  2. HYALURONIC ACID [Concomitant]
     Dosage: 1 DF, UNK
     Route: 065

REACTIONS (2)
  - EYELID PTOSIS [None]
  - OCULAR DISCOMFORT [None]
